FAERS Safety Report 15451981 (Version 1)
Quarter: 2018Q4

REPORT INFORMATION
  Report Type: Spontaneous
  Country: CA (occurrence: CA)
  Receive Date: 20181001
  Receipt Date: 20181001
  Transmission Date: 20190204
  Serious: Yes (Other)
  Sender: FDA-Public Use
  Company Number: CA-PFIZER INC-2018392151

PATIENT
  Age: 19 Month
  Sex: Female
  Weight: 10 kg

DRUGS (3)
  1. CHILDRENS TYLENOL [Concomitant]
     Active Substance: ACETAMINOPHEN
     Dosage: UNK
  2. ADVIL PEDIATRIC DROPS [Suspect]
     Active Substance: IBUPROFEN
     Indication: EAR PAIN
  3. ADVIL PEDIATRIC DROPS [Suspect]
     Active Substance: IBUPROFEN
     Indication: PYREXIA
     Dosage: 1.4 ML, 3X/DAY (1 EVERY 8 HOUR)
     Route: 048

REACTIONS (2)
  - Seizure [Recovered/Resolved]
  - Heart rate increased [Recovered/Resolved]
